FAERS Safety Report 5517778-6 (Version None)
Quarter: 2007Q4

REPORT INFORMATION
  Report Type: 
  Country: None (occurrence: None)
  Receive Date: 20071114
  Receipt Date: 20071107
  Transmission Date: 20080405
  Serious: Yes (Hospitalization)
  Sender: FDA-Public Use
  Company Number: US-MERCK-0505USA01427

PATIENT
  Age: 66 Year
  Sex: Male

DRUGS (8)
  1. ZETIA [Suspect]
     Indication: BLOOD CHOLESTEROL INCREASED
     Route: 048
     Dates: start: 20040101, end: 20070801
  2. FLOMAX (MORNIFLUMATE) [Concomitant]
     Route: 065
  3. PRILOSEC [Concomitant]
     Route: 065
  4. CYMBALTA [Concomitant]
     Route: 065
  5. FINASTERIDE [Concomitant]
     Route: 048
  6. PAXIL [Concomitant]
     Route: 065
  7. ASPIRIN [Concomitant]
     Route: 065
  8. VITAMINS (UNSPECIFIED) [Concomitant]
     Route: 065

REACTIONS (2)
  - ILEUS [None]
  - WEIGHT INCREASED [None]
